FAERS Safety Report 8117682-3 (Version None)
Quarter: 2011Q4

REPORT INFORMATION
  Report Type: 
  Country: None (occurrence: None)
  Receive Date: 20111227
  Receipt Date: 20110208
  Transmission Date: 20120403
  Serious: Yes (Other)
  Sender: FDA-Public Use
  Company Number: PHHY2010US81287

PATIENT
  Age: 86 Year
  Sex: Female

DRUGS (1)
  1. FEMARA [Suspect]
     Dosage: 2.5 MG, QD, ORAL
     Route: 048
     Dates: start: 20100709, end: 20100815

REACTIONS (2)
  - BONE DENSITY DECREASED [None]
  - HIP FRACTURE [None]
